FAERS Safety Report 4961676-3 (Version None)
Quarter: 2006Q2

REPORT INFORMATION
  Report Type: 
  Country: None (occurrence: None)
  Receive Date: 20060404
  Receipt Date: 20060322
  Transmission Date: 20061013
  Serious: Yes (Other)
  Sender: FDA-Public Use
  Company Number: PHBS2006IT04370

PATIENT
  Age: 65 Year
  Sex: Male

DRUGS (2)
  1. PAMIDRONATE DISODIUM [Suspect]
     Indication: METASTASES TO BONE
     Dosage: UNK, QMO
     Route: 065
     Dates: end: 20030101
  2. ZOLEDRONIC ACID [Suspect]
     Indication: METASTASES TO BONE
     Dosage: EVERY 4 WEEKS
     Route: 065
     Dates: start: 20030101

REACTIONS (14)
  - BACTERIAL INFECTION [None]
  - BONE DISORDER [None]
  - DYSPHAGIA [None]
  - EATING DISORDER [None]
  - FISTULA [None]
  - HYPERBARIC OXYGEN THERAPY [None]
  - OSTEOMYELITIS [None]
  - OSTEONECROSIS [None]
  - PAIN IN JAW [None]
  - PURULENT DISCHARGE [None]
  - SKIN NODULE [None]
  - SPEECH DISORDER [None]
  - SWELLING [None]
  - TOOTH EXTRACTION [None]
